FAERS Safety Report 10520727 (Version 4)
Quarter: 2014Q4

REPORT INFORMATION
  Report Type: Report from Study
  Country: CN (occurrence: CN)
  Receive Date: 20141015
  Receipt Date: 20141121
  Transmission Date: 20150528
  Serious: Yes (Hospitalization)
  Sender: FDA-Public Use
  Company Number: CN-ONYX-2014-2230

PATIENT
  Age: 69 Year
  Sex: Male
  Weight: 78.5 kg

DRUGS (26)
  1. COMPOUND AMINO ACID INJECTION [Concomitant]
     Indication: NUTRITIONAL SUPPLEMENTATION
     Route: 042
     Dates: start: 20141003, end: 20141003
  2. DEXAMETHASONE. [Concomitant]
     Active Substance: DEXAMETHASONE
     Indication: PRODUCT USED FOR UNKNOWN INDICATION
  3. AZIMTAMIDE [Concomitant]
     Indication: PROPHYLAXIS
     Route: 048
     Dates: start: 20140901
  4. GLUTATHIONE [Concomitant]
     Active Substance: GLUTATHIONE
     Indication: PROPHYLAXIS
     Route: 042
     Dates: start: 20140909, end: 20141025
  5. LEVOCARNITINE. [Concomitant]
     Active Substance: LEVOCARNITINE
     Indication: NUTRITIONAL SUPPLEMENTATION
     Route: 042
     Dates: start: 20140909, end: 20141103
  6. MA REN [Concomitant]
     Indication: PROPHYLAXIS
     Route: 048
     Dates: start: 20140909, end: 20140918
  7. SODIUM BICARBONTE [Concomitant]
     Indication: PROPHYLAXIS
     Route: 042
     Dates: start: 20140909, end: 20141030
  8. VALACYCLOVIR [Concomitant]
     Active Substance: VALACYCLOVIR HYDROCHLORIDE
     Indication: ANTIVIRAL TREATMENT
     Route: 048
     Dates: start: 20140909
  9. CARFILZOMIB [Suspect]
     Active Substance: CARFILZOMIB
     Route: 042
     Dates: start: 20141029
  10. PREDNISONE. [Suspect]
     Active Substance: PREDNISONE
     Indication: PLASMA CELL MYELOMA
     Route: 048
     Dates: start: 20140909
  11. LACTULOSE ORAL SOLUTION [Concomitant]
     Active Substance: LACTULOSE
     Indication: CONSTIPATION
     Route: 048
     Dates: start: 20140910, end: 20140915
  12. 10% POTASSIUM CHLORIDE [Concomitant]
     Active Substance: POTASSIUM CHLORIDE
     Indication: FLUID REPLACEMENT
  13. RECOMBINANT HUMAN GRANULOCYTE COLONY-STIMULATING FACTOR INJECTION [Concomitant]
     Indication: PROPHYLAXIS
     Route: 058
     Dates: start: 20140901, end: 20141001
  14. FRUSEMIDE [Concomitant]
     Active Substance: FUROSEMIDE
     Indication: EXTRASYSTOLES
     Route: 048
     Dates: start: 20140930, end: 20141007
  15. 10% POTASSIUM CHLORIDE [Concomitant]
     Active Substance: POTASSIUM CHLORIDE
     Indication: ACID BASE BALANCE
     Route: 042
     Dates: start: 20140909, end: 20140930
  16. ZOLEDRONIC ACID [Concomitant]
     Active Substance: ZOLEDRONIC ACID
     Indication: PROPHYLAXIS
     Route: 042
     Dates: start: 20140930, end: 20140930
  17. SPIRONOLACTONE. [Concomitant]
     Active Substance: SPIRONOLACTONE
     Indication: EXTRASYSTOLES
     Route: 048
     Dates: start: 20140930, end: 20141008
  18. TORSEMIDE. [Concomitant]
     Active Substance: TORSEMIDE
     Route: 042
     Dates: start: 20141003, end: 20141003
  19. SHEN SONG YANG XIN [Concomitant]
     Indication: EXTRASYSTOLES
     Route: 048
     Dates: start: 20141001, end: 20141006
  20. CARFILZOMIB [Suspect]
     Active Substance: CARFILZOMIB
     Route: 042
     Dates: start: 20140916, end: 20141008
  21. INSULIN [Concomitant]
     Active Substance: INSULIN NOS
     Indication: BLOOD GLUCOSE DECREASED
     Route: 042
     Dates: start: 20140917, end: 20141030
  22. CARFILZOMIB [Suspect]
     Active Substance: CARFILZOMIB
     Indication: PLASMA CELL MYELOMA
     Route: 042
     Dates: start: 20140909, end: 20140910
  23. MELPHALAN [Suspect]
     Active Substance: MELPHALAN
     Indication: PLASMA CELL MYELOMA
     Route: 048
     Dates: start: 20140909
  24. MOSAPRIDE [Concomitant]
     Active Substance: MOSAPRIDE
     Indication: PROPHYLAXIS
     Route: 048
     Dates: start: 20140901
  25. OMEPRAZOLE. [Concomitant]
     Active Substance: OMEPRAZOLE
     Indication: PROPHYLAXIS
     Route: 042
     Dates: start: 20140909, end: 20141025
  26. TORSEMIDE. [Concomitant]
     Active Substance: TORSEMIDE
     Indication: EXTRASYSTOLES
     Route: 042
     Dates: start: 20140909, end: 20140909

REACTIONS (1)
  - Atrial fibrillation [Recovered/Resolved]

NARRATIVE: CASE EVENT DATE: 20141009
